FAERS Safety Report 9056241 (Version 3)
Quarter: 2013Q2

REPORT INFORMATION
  Report Type: Spontaneous
  Country: US (occurrence: US)
  Receive Date: 20130205
  Receipt Date: 20130523
  Transmission Date: 20140414
  Serious: Yes (Hospitalization, Other)
  Sender: FDA-Public Use
  Company Number: US-BAYER-2013-012205

PATIENT
  Age: 37 Year
  Sex: Female
  Weight: 72.56 kg

DRUGS (11)
  1. YAZ [Suspect]
     Indication: CONTRACEPTION
     Dosage: UNK
     Dates: start: 200610, end: 200610
  2. YAZ [Suspect]
     Indication: POLYCYSTIC OVARIES
     Dosage: UNK
     Dates: start: 200711, end: 200711
  3. YAZ [Suspect]
     Indication: PREMENSTRUAL SYNDROME
     Dosage: UNK
     Dates: start: 200811, end: 200912
  4. YAZ [Suspect]
     Indication: MENSTRUAL CYCLE MANAGEMENT
     Dosage: UNK
     Dates: start: 201009, end: 201012
  5. METOPROLOL [Concomitant]
     Indication: SYSTOLIC HYPERTENSION
  6. XANAX [Concomitant]
     Indication: DEPRESSION
  7. FLUCONAZOLE [Concomitant]
  8. ZOCOR [Concomitant]
  9. MULTIVITAMIN [Concomitant]
     Dosage: TWICE DAILY
  10. LEXAPRO [Concomitant]
     Indication: DEPRESSION
     Dosage: 10 MG, DAILY
  11. LEXAPRO [Concomitant]
     Indication: ANXIETY

REACTIONS (7)
  - Cerebrovascular accident [Recovered/Resolved]
  - Cerebrovascular accident [Recovered/Resolved]
  - Cholecystitis [None]
  - Pain [Recovered/Resolved]
  - Injury [Recovered/Resolved]
  - Anxiety [None]
  - Fear of disease [None]
